FAERS Safety Report 5123238-7 (Version None)
Quarter: 2006Q4

REPORT INFORMATION
  Report Type: 
  Country: None (occurrence: None)
  Receive Date: 20061009
  Receipt Date: 20060803
  Transmission Date: 20070319
  Serious: Yes (Death, Hospitalization)
  Sender: FDA-Public Use
  Company Number: US-GLAXOSMITHKLINE-A0615202A

PATIENT
  Age: 14 Year
  Sex: Female
  Weight: 65.5 kg

DRUGS (4)
  1. ADVAIR DISKUS 100/50 [Suspect]
     Indication: ASTHMA
     Dosage: 1PUFF TWICE PER DAY
     Route: 055
     Dates: start: 20030327
  2. ALBUTEROL [Concomitant]
     Indication: ASTHMA
  3. KEFLEX [Concomitant]
     Indication: RASH
  4. PREDNISONE [Concomitant]
     Dates: start: 20030327, end: 20030401

REACTIONS (3)
  - ASTHMA [None]
  - RESPIRATORY DISORDER [None]
  - WHEEZING [None]
